FAERS Safety Report 8931928 (Version 1)
Quarter: 2012Q4

REPORT INFORMATION
  Report Type: 
  Country: US (occurrence: US)
  Receive Date: 20121128
  Receipt Date: 20121128
  Transmission Date: 20130627
  Serious: No
  Sender: FDA-Public Use
  Company Number: US-B.I. PHARMACEUTICALS,INC./RIDGEFIELD-2012-BI-01131BP

PATIENT
  Sex: Female

DRUGS (14)
  1. PRADAXA [Suspect]
     Indication: ANTICOAGULANT THERAPY
     Dosage: 300 mg
     Route: 048
     Dates: start: 2011
  2. SERTRALINE [Concomitant]
     Indication: DEPRESSION
     Dosage: 200 mg
     Route: 048
  3. VOLTAREN GEL [Concomitant]
     Indication: OSTEOARTHRITIS
     Route: 061
  4. LEVOTHYROXINE [Concomitant]
     Indication: HYPOTHYROIDISM
     Dosage: 75 mcg
     Route: 048
     Dates: start: 1983
  5. SENNA [Concomitant]
     Indication: FUNCTIONAL GASTROINTESTINAL DISORDER
     Dosage: 34.4 mg
     Route: 048
  6. FORTEO [Concomitant]
     Indication: OSTEOPOROSIS
     Route: 058
     Dates: end: 20121115
  7. TYLENOL [Concomitant]
     Indication: BACK PAIN
     Route: 048
  8. AMIKACIN [Concomitant]
     Indication: INFECTION PROPHYLAXIS
     Dosage: 60 ml
  9. FISH OIL [Concomitant]
     Dosage: 1 g
     Route: 048
  10. CRANBERRY CONCENTRATE [Concomitant]
     Indication: PROPHYLAXIS URINARY TRACT INFECTION
     Route: 048
  11. VITAMIN B12 [Concomitant]
     Indication: IMMUNE SYSTEM DISORDER
     Dosage: 500 mcg
     Route: 048
  12. PATANOL EYE DROPS [Concomitant]
     Indication: SEASONAL ALLERGY
  13. GELNIQUE 3% [Concomitant]
     Indication: INCONTINENCE
     Dosage: 2.8 g
     Route: 061
  14. COLACE [Concomitant]
     Indication: FUNCTIONAL GASTROINTESTINAL DISORDER
     Dosage: 100 mg
     Route: 048

REACTIONS (8)
  - Bleeding time prolonged [Recovered/Resolved]
  - Laceration [Recovered/Resolved]
  - Fall [Recovered/Resolved]
  - Bleeding time prolonged [Recovered/Resolved]
  - Impaired healing [Not Recovered/Not Resolved]
  - Haemorrhoids [Recovered/Resolved]
  - Rectal haemorrhage [Not Recovered/Not Resolved]
  - Back pain [Not Recovered/Not Resolved]
